FAERS Safety Report 20690206 (Version 1)
Quarter: 2022Q2

REPORT INFORMATION
  Report Type: Report from Study
  Country: DE (occurrence: DE)
  Receive Date: 20220408
  Receipt Date: 20220408
  Transmission Date: 20220720
  Serious: Yes (Other)
  Sender: FDA-Public Use
  Company Number: DE-TAKEDA-2022TUS022663

PATIENT
  Age: 20 Year
  Sex: Male

DRUGS (16)
  1. ADVATE [Suspect]
     Active Substance: ANTIHEMOPHILIC FACTOR, HUMAN RECOMBINANT
     Indication: Prophylaxis
     Dosage: UNK
     Route: 042
     Dates: start: 20050916, end: 20200219
  2. ADVATE [Suspect]
     Active Substance: ANTIHEMOPHILIC FACTOR, HUMAN RECOMBINANT
     Indication: Prophylaxis
     Dosage: UNK
     Route: 042
     Dates: start: 20050916, end: 20200219
  3. ADVATE [Suspect]
     Active Substance: ANTIHEMOPHILIC FACTOR, HUMAN RECOMBINANT
     Indication: Prophylaxis
     Dosage: UNK
     Route: 042
     Dates: start: 20050916, end: 20200219
  4. ALCOHOL [Suspect]
     Active Substance: ALCOHOL
     Indication: Product used for unknown indication
     Dosage: UNK
     Route: 065
     Dates: start: 20190615, end: 20190615
  5. DEXPANTHENOL\HYALURONATE SODIUM [Concomitant]
     Active Substance: DEXPANTHENOL\HYALURONATE SODIUM
     Indication: Epistaxis
     Dosage: UNK UNK, BID
     Route: 045
     Dates: start: 20130205
  6. Pamba [Concomitant]
     Indication: Epistaxis
     Dosage: UNK UNK, TID
     Route: 048
     Dates: start: 20130205
  7. GELATIN [Concomitant]
     Active Substance: GELATIN
     Indication: Epistaxis
     Dosage: UNK
     Route: 045
     Dates: start: 20130205
  8. IBUPROFEN [Concomitant]
     Active Substance: IBUPROFEN
     Indication: Herpes zoster
     Dosage: 200 MILLIGRAM, TID
     Route: 048
     Dates: start: 20130709, end: 20130723
  9. DICLOFENAC SODIUM [Concomitant]
     Active Substance: DICLOFENAC SODIUM
     Indication: Antiinflammatory therapy
     Dosage: 75 MILLIGRAM, QD
     Route: 048
     Dates: start: 20140129, end: 20140219
  10. METAMIZOLE SODIUM [Concomitant]
     Active Substance: METAMIZOLE SODIUM
     Indication: Pain
     Dosage: 1 MILLILITER, TID
     Route: 048
     Dates: start: 20140129, end: 20140204
  11. FERROUS GLUCONATE [Concomitant]
     Active Substance: FERROUS GLUCONATE
     Indication: Iron deficiency
     Dosage: 10 MILLIGRAM, QD
     Route: 048
     Dates: start: 20170620, end: 20170920
  12. METAMIZOLE [Concomitant]
     Active Substance: METAMIZOLE
     Indication: Abdominal pain
     Dosage: 1 GRAM, QD
     Route: 042
     Dates: start: 20190902, end: 20190903
  13. ENOXAPARIN SODIUM [Concomitant]
     Active Substance: ENOXAPARIN SODIUM
     Indication: Thrombosis prophylaxis
     Dosage: 40 MILLIGRAM
     Route: 058
     Dates: start: 20200803, end: 20200806
  14. AMOXICILLIN [Concomitant]
     Active Substance: AMOXICILLIN
     Dosage: 1 MILLIGRAM, TID
     Route: 048
     Dates: start: 20200803, end: 20200810
  15. DICLOFENAC [Concomitant]
     Active Substance: DICLOFENAC
     Indication: Pain
     Dosage: 75 MILLIGRAM, QD
     Route: 048
     Dates: start: 20190618, end: 20190701
  16. DICLOFENAC [Concomitant]
     Active Substance: DICLOFENAC
     Indication: Muscle haemorrhage

REACTIONS (1)
  - Muscle haemorrhage [Recovered/Resolved]

NARRATIVE: CASE EVENT DATE: 20200221
